FAERS Safety Report 5038676-0 (Version None)
Quarter: 2006Q2

REPORT INFORMATION
  Report Type: 
  Country: None (occurrence: None)
  Receive Date: 20060629
  Receipt Date: 20050921
  Transmission Date: 20061013
  Serious: Yes (Death, Other)
  Sender: FDA-Public Use
  Company Number: PHBS2005US14003

PATIENT
  Age: 2 Year
  Sex: Male

DRUGS (8)
  1. CYCLOSPORINE [Suspect]
     Indication: BONE MARROW TRANSPLANT
  2. CYCLOPHOSPHAMIDE [Concomitant]
  3. RADIATION THERAPY [Concomitant]
  4. ATGAM [Concomitant]
  5. STEROIDS NOS [Concomitant]
  6. METHOTREXATE [Concomitant]
     Dosage: SHORT COURSE
  7. SIROLIMUS [Concomitant]
     Indication: GRAFT VERSUS HOST DISEASE
  8. TACROLIMUS [Concomitant]
     Indication: GRAFT VERSUS HOST DISEASE

REACTIONS (10)
  - ADENOVIRUS INFECTION [None]
  - BLOOD CREATININE INCREASED [None]
  - DRUG LEVEL INCREASED [None]
  - GRAFT VERSUS HOST DISEASE [None]
  - HAEMOLYTIC URAEMIC SYNDROME [None]
  - LUNG INFILTRATION [None]
  - MENTAL STATUS CHANGES [None]
  - PNEUMONITIS [None]
  - RASH [None]
  - SKIN EXFOLIATION [None]
